FAERS Safety Report 23700259 (Version 2)
Quarter: 2024Q2

REPORT INFORMATION
  Report Type: Spontaneous
  Country: DE (occurrence: DE)
  Receive Date: 20240403
  Receipt Date: 20240414
  Transmission Date: 20240716
  Serious: Yes (Death, Hospitalization, Other)
  Sender: FDA-Public Use
  Company Number: DE-JNJFOC-20240156965

PATIENT
  Age: 9 Decade
  Sex: Male

DRUGS (3)
  1. LENALIDOMIDE [Suspect]
     Active Substance: LENALIDOMIDE
     Indication: Plasma cell myeloma
     Dosage: 25 MILLIGRAM
     Route: 065
     Dates: start: 20220501, end: 20220501
  2. DARZALEX [Suspect]
     Active Substance: DARATUMUMAB
     Indication: Plasma cell myeloma
     Dosage: 1800 MILLIGRAM
     Route: 058
     Dates: start: 20220510, end: 20230411
  3. FILGRASTIM [Concomitant]
     Active Substance: FILGRASTIM
     Indication: Product used for unknown indication
     Dosage: UNK
     Route: 058
     Dates: start: 201905, end: 201905

REACTIONS (6)
  - Medical induction of coma [Fatal]
  - Pneumonia klebsiella [Fatal]
  - Hepatic cyst [Unknown]
  - Renal cyst [Unknown]
  - Acute myocardial infarction [Fatal]
  - Brain injury [Unknown]

NARRATIVE: CASE EVENT DATE: 20230419
